FAERS Safety Report 26217037 (Version 1)
Quarter: 2025Q4

REPORT INFORMATION
  Report Type: Spontaneous
  Country: US (occurrence: US)
  Receive Date: 20251231
  Receipt Date: 20251231
  Transmission Date: 20260118
  Serious: No
  Sender: Kenvue
  Company Number: US-KENVUE-20251204151

PATIENT
  Sex: Female

DRUGS (1)
  1. WOMENS ROGAINE UNSCENTED [Suspect]
     Active Substance: MINOXIDIL
     Indication: Alopecia
     Dosage: FULL CAP , 1X A DAY
     Route: 048
     Dates: start: 20251201

REACTIONS (3)
  - Application site paraesthesia [Unknown]
  - Application site warmth [Unknown]
  - Overdose [Unknown]

NARRATIVE: CASE EVENT DATE: 20251201
